FAERS Safety Report 7281351-2 (Version None)
Quarter: 2011Q1

REPORT INFORMATION
  Report Type: 
  Country: None (occurrence: None)
  Receive Date: 20110208
  Receipt Date: 20110112
  Transmission Date: 20110831
  Serious: Yes (Other)
  Sender: FDA-Public Use
  Company Number: US-BAYER-2010-000001

PATIENT
  Sex: Male
  Weight: 77.098 kg

DRUGS (1)
  1. MAGNEVIST [Suspect]
     Indication: NUCLEAR MAGNETIC RESONANCE IMAGING BRAIN
     Dosage: 15 ML, UNK
     Route: 042
     Dates: start: 20101129, end: 20101129

REACTIONS (3)
  - BLOOD PRESSURE INCREASED [None]
  - VOMITING [None]
  - NERVOUSNESS [None]
